FAERS Safety Report 21007749 (Version 3)
Quarter: 2022Q4

REPORT INFORMATION
  Report Type: Spontaneous
  Country: JP (occurrence: JP)
  Receive Date: 20220627
  Receipt Date: 20221101
  Transmission Date: 20230113
  Serious: Yes (Life-Threatening, Other)
  Sender: FDA-Public Use
  Company Number: JP-NOVARTISPH-NVSJ2022JP092666

PATIENT

DRUGS (2)
  1. KYMRIAH [Suspect]
     Active Substance: TISAGENLECLEUCEL
     Indication: Acute lymphocytic leukaemia
     Dosage: UNK
     Route: 041
     Dates: start: 20220119
  2. METHYLPREDNISOLONE [Concomitant]
     Active Substance: METHYLPREDNISOLONE
     Indication: Acute lymphocytic leukaemia
     Dosage: UNK
     Route: 065

REACTIONS (10)
  - Cytokine release syndrome [Recovered/Resolved]
  - Pyrexia [Unknown]
  - Blood fibrinogen decreased [Unknown]
  - Blood pressure decreased [Recovering/Resolving]
  - Hypoxia [Recovering/Resolving]
  - Respiratory disorder [Recovering/Resolving]
  - Cardiovascular insufficiency [Recovering/Resolving]
  - Facial paralysis [Unknown]
  - Acute kidney injury [Recovering/Resolving]
  - Hypoaesthesia [Unknown]

NARRATIVE: CASE EVENT DATE: 20220120
